FAERS Safety Report 9261213 (Version 1)
Quarter: 2013Q2

REPORT INFORMATION
  Report Type: Spontaneous
  Country: US (occurrence: US)
  Receive Date: 20130429
  Receipt Date: 20130429
  Transmission Date: 20140414
  Serious: No
  Sender: FDA-Public Use
  Company Number: US-AMGEN-USASP2013000393

PATIENT
  Age: 44 Year
  Sex: Male

DRUGS (3)
  1. SENSIPAR [Suspect]
     Indication: PRODUCT USED FOR UNKNOWN INDICATION
     Dosage: UNK
     Dates: start: 20121031
  2. WELLBUTRIN [Concomitant]
  3. ALBUTEROL                          /00139501/ [Concomitant]

REACTIONS (1)
  - Abnormal behaviour [Unknown]
